FAERS Safety Report 5669942-3 (Version None)
Quarter: 2008Q1

REPORT INFORMATION
  Report Type: 
  Country: None (occurrence: None)
  Receive Date: 20080317
  Receipt Date: 20080305
  Transmission Date: 20080703
  Serious: Yes (Other)
  Sender: FDA-Public Use
  Company Number: US-PFIZER INC-2008022251

PATIENT
  Sex: Male
  Weight: 182.3 kg

DRUGS (2)
  1. CHANTIX [Suspect]
     Indication: SMOKING CESSATION THERAPY
  2. HYDROCHLOROTHIAZIDE [Concomitant]

REACTIONS (5)
  - ABNORMAL DREAMS [None]
  - DEPRESSION [None]
  - FEELING ABNORMAL [None]
  - NAUSEA [None]
  - WEIGHT INCREASED [None]
